FAERS Safety Report 8315204-5 (Version None)
Quarter: 2012Q2

REPORT INFORMATION
  Report Type: 
  Country: None (occurrence: None)
  Receive Date: 20120426
  Receipt Date: 20120417
  Transmission Date: 20120825
  Serious: Yes (Hospitalization)
  Sender: FDA-Public Use
  Company Number: DE-B.I. PHARMACEUTICALS,INC./RIDGEFIELD-2012-DE-01041DE

PATIENT
  Age: 82 Year
  Sex: Male

DRUGS (2)
  1. DABIGATRAN [Suspect]
     Dosage: 220 MG
  2. AMIODARONE HCL [Suspect]
     Dates: start: 20050201, end: 20120322

REACTIONS (10)
  - FATIGUE [None]
  - ABDOMINAL PAIN UPPER [None]
  - HYPERACUSIS [None]
  - HYPERSENSITIVITY [None]
  - ASTHENIA [None]
  - VOMITING [None]
  - MUSCULOSKELETAL DISCOMFORT [None]
  - DEPRESSION [None]
  - NAUSEA [None]
  - TREMOR [None]
